FAERS Safety Report 4359914-3 (Version None)
Quarter: 2004Q2

REPORT INFORMATION
  Report Type: 
  Country: None (occurrence: None)
  Receive Date: 20040518
  Receipt Date: 20040518
  Transmission Date: 20050107
  Serious: Yes (Hospitalization)
  Sender: FDA-Public Use
  Company Number: None

PATIENT
  Age: 65 Year
  Sex: Male
  Weight: 77.1115 kg

DRUGS (2)
  1. VENLAFAXINE HCL [Suspect]
     Indication: DEPRESSION
     Dosage: ONE TABLET TID FOR 4 ORAL
     Route: 048
     Dates: start: 20040330, end: 20040401
  2. VENLAFAXINE HCL [Suspect]
     Dosage: TWO TABLET TID ORAL
     Route: 048

REACTIONS (5)
  - CHEST PAIN [None]
  - COMA [None]
  - HYPERHIDROSIS [None]
  - SKIN DISCOLOURATION [None]
  - TREMOR [None]
